FAERS Safety Report 5370419-3 (Version None)
Quarter: 2007Q2

REPORT INFORMATION
  Report Type: 
  Country: None (occurrence: None)
  Receive Date: 20070625
  Receipt Date: 20070625
  Transmission Date: 20071010
  Serious: Yes (Hospitalization)
  Sender: FDA-Public Use
  Company Number: None

PATIENT
  Sex: Male
  Weight: 96 kg

DRUGS (1)
  1. AMIODARONE HCL [Suspect]
     Indication: ATRIAL FIBRILLATION
     Dosage: 200MG QAM (PO)
     Route: 048
     Dates: start: 20031001

REACTIONS (4)
  - HYPERTHYROIDISM [None]
  - PYREXIA [None]
  - TREMOR [None]
  - WEIGHT DECREASED [None]
